FAERS Safety Report 25771874 (Version 3)
Quarter: 2025Q4

REPORT INFORMATION
  Report Type: Report from Study
  Country: US (occurrence: US)
  Receive Date: 20250908
  Receipt Date: 20251003
  Transmission Date: 20260117
  Serious: Yes (Other)
  Sender: SUNOVION
  Company Number: US-SMPA-2025SPA011152

PATIENT
  Age: 68 Year
  Sex: Male

DRUGS (3)
  1. ORGOVYX [Suspect]
     Active Substance: RELUGOLIX
     Indication: Prostate cancer
     Dosage: 360 MG
     Route: 048
  2. ORGOVYX [Suspect]
     Active Substance: RELUGOLIX
     Dosage: 120 MG
     Route: 048
  3. NUBEQA [Suspect]
     Active Substance: DAROLUTAMIDE
     Indication: Product used for unknown indication
     Dosage: UNK

REACTIONS (16)
  - Thrombosis [Unknown]
  - Metastases to bone [Unknown]
  - Surgery [Unknown]
  - Intra-abdominal fluid collection [Unknown]
  - Back disorder [Unknown]
  - White blood cell count decreased [Unknown]
  - Feeling abnormal [Unknown]
  - Disturbance in attention [Unknown]
  - Prostatic specific antigen increased [Unknown]
  - Micturition disorder [Unknown]
  - Medical procedure [Unknown]
  - Middle insomnia [Unknown]
  - Hot flush [Unknown]
  - Fatigue [Unknown]
  - Hyperhidrosis [Unknown]
  - Blood triglycerides increased [Unknown]
